FAERS Safety Report 4372430-8 (Version None)
Quarter: 2004Q2

REPORT INFORMATION
  Report Type: 
  Country: None (occurrence: None)
  Receive Date: 20040526
  Receipt Date: 20040513
  Transmission Date: 20050107
  Serious: Yes (Hospitalization)
  Sender: FDA-Public Use
  Company Number: GB-JNJFOC-20040503085

PATIENT
  Age: 80 Year
  Sex: Female

DRUGS (7)
  1. DURAGESIC [Suspect]
     Indication: CANCER PAIN
     Dosage: 25 UG/HR, TRANSDERMAL
     Route: 062
     Dates: start: 20040315
  2. NEURONTIN [Suspect]
     Indication: CANCER PAIN
     Dosage: 300 MG, 1 IN 1 DAY, ORAL
     Route: 048
     Dates: start: 20040315
  3. CO-PROXAMOL (APOREX) [Concomitant]
  4. LISINOPRIL [Concomitant]
  5. ATENOLOL [Concomitant]
  6. TEMAZEPAM [Concomitant]
  7. OMEPRAZOLE [Concomitant]

REACTIONS (5)
  - BALANCE DISORDER [None]
  - BLOOD SODIUM DECREASED [None]
  - DIZZINESS [None]
  - DRUG INTERACTION [None]
  - FALL [None]
